FAERS Safety Report 4733619-9 (Version None)
Quarter: 2005Q3

REPORT INFORMATION
  Report Type: 
  Country: None (occurrence: None)
  Receive Date: 20050729
  Receipt Date: 20050621
  Transmission Date: 20060218
  Serious: No
  Sender: FDA-Public Use
  Company Number: COT_0106_2005

PATIENT
  Age: 47 Year
  Sex: Male
  Weight: 139.7079 kg

DRUGS (8)
  1. VENTAVIS [Suspect]
     Indication: PULMONARY HYPERTENSION
     Dosage: 5 MCG Q2HR IH
     Route: 055
     Dates: start: 20050520
  2. VICODIN ES [Concomitant]
  3. LISINOPRIL [Concomitant]
  4. PEG-INTRON [Concomitant]
  5. XANAX [Concomitant]
  6. NEXIUM [Concomitant]
  7. HUMALOG [Concomitant]
  8. HUMULIN N [Concomitant]

REACTIONS (2)
  - COUGH [None]
  - DIZZINESS [None]
